FAERS Safety Report 19598332 (Version 3)
Quarter: 2024Q1

REPORT INFORMATION
  Report Type: Report from Study
  Country: CA (occurrence: CA)
  Receive Date: 20210722
  Receipt Date: 20240216
  Transmission Date: 20240409
  Serious: Yes (Other)
  Sender: FDA-Public Use
  Company Number: CA-HLS-202107933

PATIENT
  Age: 43 Year
  Sex: Male
  Weight: 94 kg

DRUGS (2)
  1. CLOZARIL [Suspect]
     Active Substance: CLOZAPINE
     Indication: Schizophrenia
     Route: 048
     Dates: start: 20120808
  2. CLOZARIL [Suspect]
     Active Substance: CLOZAPINE
     Indication: Schizophrenia
     Dosage: AT BEDTIME
     Route: 048
     Dates: start: 2007

REACTIONS (7)
  - Cardiomyopathy [Unknown]
  - Orthostatic hypotension [Unknown]
  - Psychotic disorder [Recovering/Resolving]
  - Sinus tachycardia [Unknown]
  - Tachycardia [Not Recovered/Not Resolved]
  - Off label use [Unknown]
  - Weight increased [Unknown]
